FAERS Safety Report 25260040 (Version 1)
Quarter: 2025Q2

REPORT INFORMATION
  Report Type: Spontaneous
  Country: US (occurrence: None)
  Receive Date: 20250429
  Receipt Date: 20250429
  Transmission Date: 20250716
  Serious: Yes (Life-Threatening, Other)
  Sender: FDA-CTU
  Company Number: None

PATIENT

DRUGS (4)
  1. BOTOX [Suspect]
     Active Substance: ONABOTULINUMTOXINA
     Indication: Headache
  2. Vitamin injections [Concomitant]
  3. PDO threads and others [Concomitant]
  4. dermal fillers [Concomitant]

REACTIONS (4)
  - Legal problem [None]
  - Eye disorder [None]
  - Oral disorder [None]
  - Mental impairment [None]

NARRATIVE: CASE EVENT DATE: 20240512
